FAERS Safety Report 8283493-1 (Version None)
Quarter: 2012Q2

REPORT INFORMATION
  Report Type: 
  Country: None (occurrence: None)
  Receive Date: 20120413
  Receipt Date: 20120411
  Transmission Date: 20120825
  Serious: Yes (Other)
  Sender: FDA-Public Use
  Company Number: CHNY2012NL000508

PATIENT
  Age: 66 Year
  Sex: Female

DRUGS (5)
  1. ARIMIDEX [Suspect]
     Indication: BREAST CANCER
     Dosage: UNK
  2. ATORVASTATIN [Concomitant]
     Indication: HYPERCHOLESTEROLAEMIA
  3. CLEMASTINE FUMARATE [Suspect]
     Dosage: 2 MG, QD
     Route: 048
  4. CLEMASTINE FUMARATE [Suspect]
     Indication: HYPERSENSITIVITY
     Dosage: 1 MG, QD
     Route: 048
  5. EZETIMIBE [Concomitant]
     Indication: HYPERCHOLESTEROLAEMIA

REACTIONS (3)
  - AGRANULOCYTOSIS [None]
  - OROPHARYNGEAL PAIN [None]
  - MOUTH ULCERATION [None]
